FAERS Safety Report 20867371 (Version 1)
Quarter: 2022Q2

REPORT INFORMATION
  Report Type: Spontaneous
  Country: US (occurrence: None)
  Receive Date: 20220523
  Receipt Date: 20220523
  Transmission Date: 20220721
  Serious: Yes (Life-Threatening, Other)
  Sender: FDA-Public Use
  Company Number: None

PATIENT
  Age: 32 Year
  Sex: Female

DRUGS (1)
  1. MIRALAX [Suspect]
     Active Substance: POLYETHYLENE GLYCOL 3350
     Indication: Faeces hard
     Dates: start: 20220502, end: 20220502

REACTIONS (4)
  - Anaphylactic reaction [None]
  - Urticaria [None]
  - Conjunctivitis allergic [None]
  - Throat tightness [None]

NARRATIVE: CASE EVENT DATE: 20220502
